FAERS Safety Report 24187431 (Version 2)
Quarter: 2025Q1

REPORT INFORMATION
  Report Type: Report from Study
  Country: CA (occurrence: CA)
  Receive Date: 20240808
  Receipt Date: 20250318
  Transmission Date: 20250408
  Serious: Yes (Other)
  Sender: GLAXOSMITHKLINE
  Company Number: CA-GSKJP-CA2024089997AA

PATIENT

DRUGS (4)
  1. MEPOLIZUMAB [Suspect]
     Active Substance: MEPOLIZUMAB
     Indication: Asthma
     Dosage: 100 MG, Q4W
     Route: 058
     Dates: start: 20240618
  2. SYMBICORT [Concomitant]
     Active Substance: BUDESONIDE\FORMOTEROL FUMARATE DIHYDRATE
     Indication: Product used for unknown indication
  3. MONTELUKAST [Concomitant]
     Active Substance: MONTELUKAST
     Indication: Product used for unknown indication
     Dosage: UNK, QD
     Dates: start: 20240507
  4. INCRUSE ELLIPTA [Concomitant]
     Active Substance: UMECLIDINIUM BROMIDE
     Indication: Product used for unknown indication

REACTIONS (4)
  - Pneumonia [Unknown]
  - Dyspnoea [Unknown]
  - Therapeutic product effect incomplete [Unknown]
  - Inappropriate schedule of product administration [Unknown]

NARRATIVE: CASE EVENT DATE: 20240724
